FAERS Safety Report 8545385-X (Version None)
Quarter: 2012Q3

REPORT INFORMATION
  Report Type: 
  Country: None (occurrence: None)
  Receive Date: 20120727
  Receipt Date: 20120712
  Transmission Date: 20120928
  Serious: Yes (Hospitalization)
  Sender: FDA-Public Use
  Company Number: ES-ELI_LILLY_AND_COMPANY-ES201205002220

PATIENT
  Sex: Female
  Weight: 63 kg

DRUGS (6)
  1. OMEPRAZOLE [Concomitant]
     Indication: GASTRIC DISORDER
     Dosage: UNK, QD
     Route: 048
  2. ALPRAZOLAM [Concomitant]
     Indication: DEPRESSION
     Dosage: 0.25 MG, BID
     Route: 048
  3. DAFLON [Concomitant]
     Indication: CARDIOVASCULAR DISORDER
     Dosage: UNK, QD
     Route: 048
  4. SERC                               /00034201/ [Concomitant]
     Indication: VERTIGO
     Dosage: UNK, QD
     Route: 048
  5. FORTEO [Suspect]
     Indication: OSTEOPOROSIS
     Dosage: UNK, UNKNOWN
     Route: 058
     Dates: start: 20110301, end: 20120523
  6. SINVASTATINA [Concomitant]
     Indication: DYSLIPIDAEMIA
     Dosage: UNK, QD
     Route: 048

REACTIONS (7)
  - RECTAL HAEMORRHAGE [None]
  - GAIT DISTURBANCE [None]
  - INFLAMMATION [None]
  - ASTHENIA [None]
  - DIVERTICULITIS [None]
  - PAIN IN EXTREMITY [None]
  - ARTHRALGIA [None]
